FAERS Safety Report 6793605-4 (Version None)
Quarter: 2010Q2

REPORT INFORMATION
  Report Type: 
  Country: None (occurrence: None)
  Receive Date: 20100624
  Receipt Date: 20081208
  Transmission Date: 20101027
  Serious: No
  Sender: FDA-Public Use
  Company Number: US-PFIZER INC-2008154610

PATIENT
  Sex: Male
  Weight: 68 kg

DRUGS (7)
  1. XALATAN [Suspect]
     Indication: INTRAOCULAR PRESSURE INCREASED
     Dosage: 1 GTT, 1X/DAY
     Dates: start: 20081103
  2. REQUIP [Concomitant]
     Dosage: UNK
  3. IPRATROPIUM BROMIDE [Concomitant]
     Dosage: UNK
     Route: 045
  4. FLUNISOLIDE [Concomitant]
     Dosage: UNK
     Route: 045
  5. ADVAIR DISKUS 100/50 [Concomitant]
     Dosage: UNK
  6. ACETYLSALICYLIC ACID [Concomitant]
     Dosage: UNK
  7. ALEVE (CAPLET) [Concomitant]
     Indication: BACK PAIN
     Dosage: UNK

REACTIONS (1)
  - RASH PAPULAR [None]
